FAERS Safety Report 4698861-4 (Version None)
Quarter: 2005Q2

REPORT INFORMATION
  Report Type: 
  Country: None (occurrence: None)
  Receive Date: 20050623
  Receipt Date: 20050607
  Transmission Date: 20051028
  Serious: Yes (Hospitalization)
  Sender: FDA-Public Use
  Company Number: 210696

PATIENT
  Age: 59 Year
  Sex: Male
  Weight: 73 kg

DRUGS (7)
  1. BEVACIZUMAB OR PLACEBO (BEVACIZUMAB) PWDR + SOLVENT, INFUSION SOLN, 10 [Suspect]
     Indication: COLORECTAL CANCER METASTATIC
     Dosage: 550 MG, Q3W, INTRAVENOUS
     Route: 042
     Dates: start: 20041105
  2. CAPECITABINE (CAPECITABINE) [Suspect]
     Indication: COLORECTAL CANCER METASTATIC
     Dosage: 1800 MG, BID, ORAL
     Route: 048
     Dates: start: 20041105
  3. OXALIPLATIN (OXALIPLATIN) [Suspect]
     Indication: COLORECTAL CANCER METASTATIC
     Dosage: 240 MG, Q3W, INTRAVENOUS
     Route: 042
     Dates: start: 20041105
  4. TEMAZEPAM [Concomitant]
  5. IRON, NOS (IRON NOS) [Concomitant]
  6. DEXAMETHASONE [Concomitant]
  7. DIGOXIN [Concomitant]

REACTIONS (4)
  - ATRIAL FIBRILLATION [None]
  - PANCYTOPENIA [None]
  - PLEURITIC PAIN [None]
  - PNEUMONIA [None]
